FAERS Safety Report 5299891-4 (Version None)
Quarter: 2007Q2

REPORT INFORMATION
  Report Type: 
  Country: None (occurrence: None)
  Receive Date: 20070417
  Receipt Date: 20070406
  Transmission Date: 20071010
  Serious: Yes (Other)
  Sender: FDA-Public Use
  Company Number: US-PFIZER INC-2007028028

PATIENT
  Sex: Female
  Weight: 70.3 kg

DRUGS (4)
  1. CABERGOLINE [Suspect]
     Indication: PITUITARY TUMOUR BENIGN
     Dates: start: 20070101, end: 20070401
  2. ATENOLOL [Concomitant]
  3. TRIAMTEREN [Concomitant]
  4. SIMVASTATIN [Concomitant]

REACTIONS (3)
  - FEELING ABNORMAL [None]
  - HALLUCINATION [None]
  - INSOMNIA [None]
